FAERS Safety Report 23853612 (Version 1)
Quarter: 2024Q2

REPORT INFORMATION
  Report Type: Spontaneous
  Country: US (occurrence: US)
  Receive Date: 20240514
  Receipt Date: 20240514
  Transmission Date: 20240716
  Serious: Yes (Other)
  Sender: FDA-Public Use
  Company Number: None

PATIENT
  Age: 49 Year
  Sex: Male

DRUGS (31)
  1. CYCLOPHOSPHAMIDE [Suspect]
     Active Substance: CYCLOPHOSPHAMIDE
     Indication: Light chain disease
     Dosage: C5W1
     Dates: start: 20231212, end: 2023
  2. CYCLOPHOSPHAMIDE [Suspect]
     Active Substance: CYCLOPHOSPHAMIDE
     Dosage: C3W1
     Dates: start: 20231107, end: 2023
  3. CYCLOPHOSPHAMIDE [Suspect]
     Active Substance: CYCLOPHOSPHAMIDE
     Dosage: C4W2
     Dates: start: 20231128, end: 2023
  4. CYCLOPHOSPHAMIDE [Suspect]
     Active Substance: CYCLOPHOSPHAMIDE
     Dosage: C6W1
     Dates: start: 20240103, end: 2024
  5. CYCLOPHOSPHAMIDE [Suspect]
     Active Substance: CYCLOPHOSPHAMIDE
     Dosage: C7W1
     Dates: start: 20240124, end: 2024
  6. CYCLOPHOSPHAMIDE [Suspect]
     Active Substance: CYCLOPHOSPHAMIDE
     Dosage: C4W1
     Dates: start: 20231121, end: 2023
  7. CYCLOPHOSPHAMIDE [Suspect]
     Active Substance: CYCLOPHOSPHAMIDE
     Dosage: C1W1
     Dates: start: 20230927, end: 2023
  8. CYCLOPHOSPHAMIDE [Suspect]
     Active Substance: CYCLOPHOSPHAMIDE
     Dosage: C6W2
     Dates: start: 20240110, end: 2024
  9. CYCLOPHOSPHAMIDE [Suspect]
     Active Substance: CYCLOPHOSPHAMIDE
     Dosage: C8W1
     Dates: start: 20240214, end: 2024
  10. CYCLOPHOSPHAMIDE [Suspect]
     Active Substance: CYCLOPHOSPHAMIDE
     Dosage: C1W2
     Dates: start: 20231003, end: 2023
  11. BORTEZOMIB [Suspect]
     Active Substance: BORTEZOMIB
     Indication: Light chain disease
     Dosage: C4W2
     Dates: start: 20231128, end: 2023
  12. BORTEZOMIB [Suspect]
     Active Substance: BORTEZOMIB
     Dosage: C3W1
     Dates: start: 20231107, end: 2023
  13. BORTEZOMIB [Suspect]
     Active Substance: BORTEZOMIB
     Dosage: C2W1
     Dates: start: 20231018, end: 2023
  14. BORTEZOMIB [Suspect]
     Active Substance: BORTEZOMIB
     Dosage: C1W2
     Dates: start: 20231003, end: 2023
  15. BORTEZOMIB [Suspect]
     Active Substance: BORTEZOMIB
     Dosage: C8W1
     Dates: start: 20240214, end: 2024
  16. BORTEZOMIB [Suspect]
     Active Substance: BORTEZOMIB
     Dosage: C6W2
     Dates: start: 20240110, end: 2024
  17. BORTEZOMIB [Suspect]
     Active Substance: BORTEZOMIB
     Dosage: C1W1
     Dates: start: 20230927, end: 2023
  18. BORTEZOMIB [Suspect]
     Active Substance: BORTEZOMIB
     Dosage: C7W2
     Dates: start: 20240131, end: 2024
  19. BORTEZOMIB [Suspect]
     Active Substance: BORTEZOMIB
     Dosage: C7W1
     Dates: start: 20240124, end: 2024
  20. BORTEZOMIB [Suspect]
     Active Substance: BORTEZOMIB
     Dosage: C4W1
     Dates: start: 20231121, end: 2023
  21. BORTEZOMIB [Suspect]
     Active Substance: BORTEZOMIB
     Dosage: C5W1
     Dates: start: 20231212, end: 2023
  22. BORTEZOMIB [Suspect]
     Active Substance: BORTEZOMIB
     Dosage: C2W2
     Dates: start: 20231024, end: 2023
  23. BORTEZOMIB [Suspect]
     Active Substance: BORTEZOMIB
     Dosage: C6W1
     Dates: start: 20240103, end: 2024
  24. DEXAMETHASONE [Suspect]
     Active Substance: DEXAMETHASONE
     Indication: Light chain disease
     Dosage: C1W2
     Dates: start: 20231003, end: 2023
  25. DEXAMETHASONE [Suspect]
     Active Substance: DEXAMETHASONE
     Dosage: C4W1
     Dates: start: 20231121, end: 2023
  26. DEXAMETHASONE [Suspect]
     Active Substance: DEXAMETHASONE
     Dosage: C8W1
     Dates: start: 20240214, end: 2024
  27. DEXAMETHASONE [Suspect]
     Active Substance: DEXAMETHASONE
     Dosage: C6W1
     Dates: start: 20240103, end: 2024
  28. DEXAMETHASONE [Suspect]
     Active Substance: DEXAMETHASONE
     Dosage: C4W2
     Dates: start: 20231128, end: 2023
  29. DEXAMETHASONE [Suspect]
     Active Substance: DEXAMETHASONE
     Dosage: C5W1
     Dates: start: 20231212, end: 2023
  30. DEXAMETHASONE [Suspect]
     Active Substance: DEXAMETHASONE
     Dosage: C1W1
     Dates: start: 20230927, end: 2023
  31. DEXAMETHASONE [Suspect]
     Active Substance: DEXAMETHASONE
     Dosage: C3W1
     Dates: start: 20231107, end: 2023

REACTIONS (1)
  - Heart failure with reduced ejection fraction [Unknown]
